FAERS Safety Report 5262366-2 (Version None)
Quarter: 2007Q1

REPORT INFORMATION
  Report Type: 
  Country: None (occurrence: None)
  Receive Date: 20070309
  Receipt Date: 20070309
  Transmission Date: 20070707
  Serious: Yes (Hospitalization)
  Sender: FDA-Public Use
  Company Number: None

PATIENT
  Sex: Male
  Weight: 76.6579 kg

DRUGS (16)
  1. ERLOTINIB [Suspect]
     Indication: NON-SMALL CELL LUNG CANCER METASTATIC
     Dosage: 175MG DAILY PO
     Route: 048
     Dates: start: 20070104, end: 20070217
  2. NORVASC [Concomitant]
  3. NEXIUM [Concomitant]
  4. NOVOLOG [Concomitant]
     Dosage: SLIDING SCALE
  5. LANTUS [Concomitant]
  6. PRANDIN [Concomitant]
  7. VYTORIN [Concomitant]
  8. AMBIEN [Concomitant]
  9. OXYCODONE HCL [Concomitant]
  10. HYDROCODONE [Concomitant]
  11. ALBUTEROL [Concomitant]
  12. CHERATUSSIN AC [Concomitant]
  13. ROBITUSSIN AC [Concomitant]
  14. DELSYM [Concomitant]
  15. CIPROFLOXACIN [Concomitant]
  16. AMOXICILLIN [Concomitant]

REACTIONS (5)
  - ATELECTASIS [None]
  - DISEASE PROGRESSION [None]
  - OBSTRUCTIVE AIRWAYS DISORDER [None]
  - PLEURAL EFFUSION [None]
  - PNEUMONIA [None]
